FAERS Safety Report 7908561-2 (Version None)
Quarter: 2011Q4

REPORT INFORMATION
  Report Type: 
  Country: None (occurrence: None)
  Receive Date: 20111111
  Receipt Date: 20111107
  Transmission Date: 20120403
  Serious: Yes (Other)
  Sender: FDA-Public Use
  Company Number: US-PFIZER INC-2011228827

PATIENT
  Sex: Male
  Weight: 90.703 kg

DRUGS (12)
  1. PENTOBARBITAL [Concomitant]
     Indication: EPILEPSY
     Dosage: 30 MG
  2. CELEXA [Concomitant]
     Dosage: UNK
  3. DILANTIN [Concomitant]
     Dosage: 100 MG THREE CAPSULES IN THE MORNING AND TWO CAPSULES AT NIGHT
     Route: 048
  4. KLONOPIN [Concomitant]
     Dosage: UNK
  5. DILANTIN [Suspect]
     Dosage: 100 MG, 3 IN AM, 2 IN PM
  6. FLOMAX [Concomitant]
     Indication: PROSTATIC DISORDER
     Dosage: 0.4 MG, UNK
  7. OMEPRAZOLE [Concomitant]
     Indication: GASTROOESOPHAGEAL REFLUX DISEASE
     Dosage: 40 MG, UNK
  8. LIPITOR [Concomitant]
     Indication: BLOOD CHOLESTEROL ABNORMAL
     Dosage: 80 MG, UNK
  9. PLAVIX [Concomitant]
     Indication: ANTICOAGULANT THERAPY
     Dosage: 75 MG, UNK
  10. ASPIRIN [Concomitant]
  11. PROAIR HFA [Concomitant]
     Dosage: UNK
  12. DILANTIN [Suspect]
     Indication: EPILEPSY
     Dosage: 10 TABLETS OF 50 MG IN A DAY
     Route: 048
     Dates: start: 20110901, end: 20110924

REACTIONS (3)
  - ANTICONVULSANT DRUG LEVEL INCREASED [None]
  - NAUSEA [None]
  - DYSSTASIA [None]
